FAERS Safety Report 4306237-4 (Version None)
Quarter: 2004Q1

REPORT INFORMATION
  Report Type: 
  Country: None (occurrence: None)
  Receive Date: 20040225
  Receipt Date: 20030325
  Transmission Date: 20041129
  Serious: No
  Sender: FDA-Public Use
  Company Number: US-BRISTOL-MYERS SQUIBB COMPANY-12238960

PATIENT
  Age: 59 Year
  Sex: Female
  Weight: 63 kg

DRUGS (6)
  1. EXCEDRIN (MIGRAINE) [Suspect]
     Indication: MIGRAINE
     Route: 048
  2. LANOXIN [Concomitant]
  3. MICRONASE [Concomitant]
  4. ATENOLOL [Concomitant]
  5. HYDROCHLOROTHIAZIDE [Concomitant]
  6. FIORICET [Concomitant]

REACTIONS (1)
  - DRUG INEFFECTIVE [None]
